FAERS Safety Report 25576900 (Version 1)
Quarter: 2025Q3

REPORT INFORMATION
  Report Type: Spontaneous
  Country: US (occurrence: None)
  Receive Date: 20250718
  Receipt Date: 20250718
  Transmission Date: 20251021
  Serious: Yes (Hospitalization)
  Sender: FDA-CTU
  Company Number: None

PATIENT
  Age: 76 Year
  Sex: Male
  Weight: 94.3 kg

DRUGS (2)
  1. TOLODODEKIN ALFA [Suspect]
     Active Substance: TOLODODEKIN ALFA
     Dates: end: 20250422
  2. LENALIDOMIDE [Suspect]
     Active Substance: LENALIDOMIDE
     Dates: end: 20250421

REACTIONS (6)
  - Dyspnoea exertional [None]
  - Productive cough [None]
  - Presyncope [None]
  - Coronary artery stenosis [None]
  - Arteriosclerosis coronary artery [None]
  - Troponin increased [None]

NARRATIVE: CASE EVENT DATE: 20250430
